FAERS Safety Report 7904171-1 (Version None)
Quarter: 2011Q4

REPORT INFORMATION
  Report Type: 
  Country: None (occurrence: None)
  Receive Date: 20111109
  Receipt Date: 20111102
  Transmission Date: 20120403
  Serious: Yes (Hospitalization, Disabling, Other)
  Sender: FDA-Public Use
  Company Number: GB-PFIZER INC-2011268911

PATIENT
  Age: 81 Year
  Sex: Female

DRUGS (6)
  1. GALANTAMINE [Concomitant]
     Indication: DEMENTIA
     Dosage: 24 MG, ONCE DAILY
  2. FLUCONAZOLE [Suspect]
     Indication: ANAL CANDIDIASIS
     Dosage: 50 MG, UNK
     Route: 048
     Dates: start: 20111014, end: 20111016
  3. CITALOPRAM [Concomitant]
     Indication: DEPRESSION
     Dosage: 20 MG, ONCE DAILY
     Route: 048
  4. FLUCONAZOLE [Suspect]
     Indication: VULVOVAGINAL CANDIDIASIS
  5. LEVOTHYROXINE [Concomitant]
     Indication: HYPOTHYROIDISM
     Dosage: 100 UG, ONCE DAILY
  6. SIMVASTATIN [Concomitant]
     Indication: BLOOD CHOLESTEROL INCREASED
     Dosage: 40 MG, ONCE DAILY

REACTIONS (3)
  - RENAL FAILURE [None]
  - DEHYDRATION [None]
  - ACUTE GENERALISED EXANTHEMATOUS PUSTULOSIS [None]
